FAERS Safety Report 7974135-0 (Version None)
Quarter: 2011Q4

REPORT INFORMATION
  Report Type: 
  Country: None (occurrence: None)
  Receive Date: 20111213
  Receipt Date: 20111128
  Transmission Date: 20120403
  Serious: Yes (Other)
  Sender: FDA-Public Use
  Company Number: US-BAYER-2011-044179

PATIENT
  Age: 35 Year
  Sex: Female
  Weight: 128 kg

DRUGS (19)
  1. TRICOR [Concomitant]
  2. YAZ [Suspect]
     Indication: CONTRACEPTION
     Dosage: UNK
     Dates: start: 20050101, end: 20100101
  3. YASMIN [Suspect]
     Indication: PREMENSTRUAL SYNDROME
  4. MAXAIR [Concomitant]
     Indication: ASTHMA
     Dosage: UNK
     Dates: start: 20050101
  5. YAZ [Suspect]
  6. YASMIN [Suspect]
  7. ALLEGRA [Concomitant]
  8. PROMETHAZINE [Concomitant]
  9. YAZ [Suspect]
     Indication: ACNE
     Dosage: UNK
     Dates: start: 20080721, end: 20090901
  10. YASMIN [Suspect]
     Indication: CONTRACEPTION
     Dosage: UNK
     Dates: start: 20050101, end: 20100101
  11. GLUCOPHAGE [Concomitant]
  12. HYDROCORTONE [Concomitant]
  13. NASONEX [Concomitant]
  14. YAZ [Suspect]
     Indication: PREMENSTRUAL SYNDROME
  15. YASMIN [Suspect]
     Indication: ACNE
     Dosage: UNK
     Dates: start: 20051001, end: 20080701
  16. NEXIUM [Concomitant]
     Dosage: UNK
     Dates: start: 20060101
  17. CLONAZEPAM [Concomitant]
     Dosage: UNK
     Dates: start: 20000101
  18. LANTUS [Concomitant]
  19. OXYCODONE HCL [Concomitant]

REACTIONS (5)
  - CHOLECYSTITIS CHRONIC [None]
  - ABDOMINAL PAIN UPPER [None]
  - PANCREATITIS [None]
  - CHOLECYSTECTOMY [None]
  - INJURY [None]
